FAERS Safety Report 11395256 (Version 1)
Quarter: 2015Q3

REPORT INFORMATION
  Report Type: Other
  Country: IT (occurrence: IT)
  Receive Date: 20150819
  Receipt Date: 20150819
  Transmission Date: 20151125
  Serious: Yes (Other)
  Sender: FDA-Public Use
  Company Number: IT-MYLANLABS-2015M1027069

PATIENT

DRUGS (14)
  1. OLANZAPINE. [Suspect]
     Active Substance: OLANZAPINE
     Dosage: 10 MG, HS
     Route: 048
  2. VALPROIC ACID. [Concomitant]
     Active Substance: VALPROIC ACID
     Dosage: 750 MG, QD
     Route: 048
  3. VALPROIC ACID. [Concomitant]
     Active Substance: VALPROIC ACID
     Dosage: 1000 MG, QD
     Route: 048
  4. SYCREST [Suspect]
     Active Substance: ASENAPINE MALEATE
     Dosage: 5 MG, BID
     Route: 060
  5. SYCREST [Suspect]
     Active Substance: ASENAPINE MALEATE
     Indication: BIPOLAR DISORDER
     Dosage: 1 DF, QD
     Route: 060
  6. SYCREST [Suspect]
     Active Substance: ASENAPINE MALEATE
     Dosage: 10 MG, HS
     Route: 060
  7. CITALOPRAM [Concomitant]
     Active Substance: CITALOPRAM HYDROBROMIDE
     Indication: DEPRESSED MOOD
     Dosage: 10 MG, QD
  8. FINASTERIDE. [Concomitant]
     Active Substance: FINASTERIDE
     Indication: PROSTATIC ADENOMA
     Dosage: 5 MG, UNK
     Route: 048
     Dates: start: 2011
  9. CLOMIPRAMINE                       /00116802/ [Concomitant]
     Indication: PRODUCT USED FOR UNKNOWN INDICATION
     Dosage: 75 MG, QD
     Route: 048
  10. VALPROIC ACID. [Concomitant]
     Active Substance: VALPROIC ACID
     Dosage: 750 MG, QD
     Route: 048
  11. LITHIUM                            /00033702/ [Concomitant]
     Indication: PRODUCT USED FOR UNKNOWN INDICATION
     Dosage: 600 MG, QD
     Route: 048
  12. OLANZAPINE. [Suspect]
     Active Substance: OLANZAPINE
     Dosage: 2.5 MG, HS
  13. VALPROIC ACID. [Concomitant]
     Active Substance: VALPROIC ACID
     Indication: PRODUCT USED FOR UNKNOWN INDICATION
     Dosage: 600 MG, QD
     Route: 048
  14. SYCREST [Suspect]
     Active Substance: ASENAPINE MALEATE
     Dosage: 10 MG, UNK
     Route: 060

REACTIONS (12)
  - Hypomania [Recovered/Resolved]
  - Anxiety [Recovered/Resolved]
  - Stupor [Recovered/Resolved]
  - Urinary hesitation [Recovered/Resolved]
  - Asthenia [Recovered/Resolved]
  - Malaise [Recovered/Resolved]
  - Depression [Recovered/Resolved]
  - Off label use [Recovered/Resolved]
  - Anhedonia [Recovered/Resolved]
  - Affective disorder [Recovered/Resolved]
  - Somnolence [Recovered/Resolved]
  - Sleep disorder [Recovered/Resolved]
